FAERS Safety Report 25006567 (Version 1)
Quarter: 2025Q1

REPORT INFORMATION
  Report Type: Other
  Country: LK (occurrence: LK)
  Receive Date: 20250225
  Receipt Date: 20250225
  Transmission Date: 20250409
  Serious: Yes (Death, Hospitalization, Other)
  Sender: INNOGENIX, LLC
  Company Number: LK-Innogenix, LLC-2171670

PATIENT
  Age: 24 Year
  Sex: Male

DRUGS (3)
  1. HALOPERIDOL [Suspect]
     Active Substance: HALOPERIDOL
     Indication: Product used for unknown indication
  2. TRIHEXYPHENIDYL [Suspect]
     Active Substance: TRIHEXYPHENIDYL
  3. OLANZAPINE [Suspect]
     Active Substance: OLANZAPINE

REACTIONS (5)
  - Pulmonary haemorrhage [Fatal]
  - Intentional overdose [Unknown]
  - Toxicity to various agents [Fatal]
  - Renal tubular necrosis [Fatal]
  - Pulmonary oedema [Fatal]
